FAERS Safety Report 16240594 (Version 3)
Quarter: 2019Q3

REPORT INFORMATION
  Report Type: Spontaneous
  Country: US (occurrence: US)
  Receive Date: 20190425
  Receipt Date: 20190719
  Transmission Date: 20191004
  Serious: Yes (Death, Other)
  Sender: FDA-Public Use
  Company Number: US-ASTRAZENECA-2018SF66109

PATIENT
  Sex: Female
  Weight: 63.5 kg

DRUGS (12)
  1. PRILOSEC OTC [Suspect]
     Active Substance: OMEPRAZOLE MAGNESIUM
     Route: 048
  2. CIPROFLOXACIN. [Concomitant]
     Active Substance: CIPROFLOXACIN
  3. TORADOL [Concomitant]
     Active Substance: KETOROLAC TROMETHAMINE
  4. ASPIRIN. [Concomitant]
     Active Substance: ASPIRIN
  5. AMOXICILLIN. [Concomitant]
     Active Substance: AMOXICILLIN
  6. NEXIUM [Suspect]
     Active Substance: ESOMEPRAZOLE MAGNESIUM
     Indication: GASTROOESOPHAGEAL REFLUX DISEASE
     Route: 048
     Dates: start: 2013
  7. MELOXICAM. [Concomitant]
     Active Substance: MELOXICAM
  8. NEXIUM 24HR [Suspect]
     Active Substance: ESOMEPRAZOLE MAGNESIUM
     Route: 048
  9. PRILOSEC [Suspect]
     Active Substance: OMEPRAZOLE MAGNESIUM
     Indication: GASTROOESOPHAGEAL REFLUX DISEASE
     Route: 048
     Dates: start: 2013
  10. TRAMADOL. [Concomitant]
     Active Substance: TRAMADOL
  11. LEVOFLOXACIN. [Concomitant]
     Active Substance: LEVOFLOXACIN
  12. PEPCID [Concomitant]
     Active Substance: FAMOTIDINE

REACTIONS (6)
  - Chronic kidney disease [Unknown]
  - Renal failure [Unknown]
  - Renal disorder [Not Recovered/Not Resolved]
  - Rebound acid hypersecretion [Unknown]
  - Death [Fatal]
  - Renal injury [Unknown]
